FAERS Safety Report 7394878-X (Version None)
Quarter: 2011Q2

REPORT INFORMATION
  Report Type: 
  Country: None (occurrence: None)
  Receive Date: 20110405
  Receipt Date: 20110328
  Transmission Date: 20111010
  Serious: Yes (Hospitalization)
  Sender: FDA-Public Use
  Company Number: A0921325A

PATIENT
  Age: 63 Year
  Sex: Female
  Weight: 64.9 kg

DRUGS (1)
  1. MELPHALAN [Suspect]
     Indication: CHEMOTHERAPY

REACTIONS (4)
  - PYREXIA [None]
  - ASTHENIA [None]
  - FATIGUE [None]
  - ANAEMIA [None]
